FAERS Safety Report 16850748 (Version 1)
Quarter: 2019Q3

REPORT INFORMATION
  Report Type: Spontaneous
  Country: US (occurrence: US)
  Receive Date: 20190925
  Receipt Date: 20190925
  Transmission Date: 20191005
  Serious: No
  Sender: FDA-Public Use
  Company Number: US-THERAPEUTICSMD-2019TMD02947

PATIENT
  Age: 65 Year
  Sex: Female
  Weight: 56.69 kg

DRUGS (16)
  1. VALACYCLOVIR [Concomitant]
     Active Substance: VALACYCLOVIR HYDROCHLORIDE
     Dosage: 500 MG, EVERY 48 HOURS
     Dates: start: 201902
  2. VITAMIN E [Concomitant]
     Active Substance: .ALPHA.-TOCOPHEROL
     Dosage: 200 IU, 1X/DAY
  3. VITAMIN D [Concomitant]
     Active Substance: VITAMIN D NOS
     Dosage: 5000 IU, 1X/DAY
  4. SUPER C [Concomitant]
     Dosage: 1 OR 2, 1X/DAY
  5. D-MANOS [Concomitant]
  6. CRANBERRY JUICE [Concomitant]
     Active Substance: CRANBERRY JUICE
  7. IMVEXXY [Suspect]
     Active Substance: ESTRADIOL
     Indication: FEMALE ORGASMIC DISORDER
  8. IMVEXXY [Suspect]
     Active Substance: ESTRADIOL
     Indication: ATROPHIC VULVOVAGINITIS
  9. PROGESTERONE. [Concomitant]
     Active Substance: PROGESTERONE
     Dosage: 100 MG, 1X/DAY
  10. GARLIC REISHI [Concomitant]
     Dosage: UNK, UP TO 2X/DAY
  11. PANTOPRAZOLE [Concomitant]
     Active Substance: PANTOPRAZOLE
     Dosage: 1 DOSAGE UNITS, 1X/DAY
     Dates: start: 2019
  12. REACTED IRON [Concomitant]
     Dosage: UNK, 1X/DAY
  13. SUPER B [Concomitant]
     Dosage: 2 DOSAGE UNITS, 1X/DAY
  14. ASHWAGANDHA [Concomitant]
     Active Substance: HERBALS
     Dosage: UNK, 1X/DAY
  15. IMVEXXY [Suspect]
     Active Substance: ESTRADIOL
     Indication: VULVOVAGINAL DRYNESS
     Dosage: 10 ?G, 1X/DAY AT 3-4 PM IN THE AFTERNOON
     Route: 067
     Dates: start: 20190824
  16. ESTROGEN PATCH [Concomitant]
     Active Substance: ESTRADIOL
     Dosage: 0.5 DOSAGE UNITS, 2X/WEEK

REACTIONS (3)
  - Pollakiuria [Not Recovered/Not Resolved]
  - Dysuria [Not Recovered/Not Resolved]
  - Urinary tract infection [Not Recovered/Not Resolved]

NARRATIVE: CASE EVENT DATE: 20190826
